FAERS Safety Report 8929768 (Version 1)
Quarter: 2012Q4

REPORT INFORMATION
  Report Type: 
  Country: FR (occurrence: FR)
  Receive Date: 20121128
  Receipt Date: 20121128
  Transmission Date: 20130627
  Serious: Yes (Hospitalization)
  Sender: FDA-Public Use
  Company Number: PHHY2012FR105351

PATIENT
  Age: 49 Year
  Sex: Male

DRUGS (11)
  1. CERTICAN [Suspect]
     Indication: PROPHYLAXIS AGAINST TRANSPLANT REJECTION
     Dosage: UNK UKN, UNK
     Dates: start: 20120530
  2. CELLCEPT [Suspect]
     Indication: PROPHYLAXIS AGAINST TRANSPLANT REJECTION
     Dosage: UNK UKN, UNK
     Dates: start: 200911, end: 20120608
  3. CARBOPLATINE [Suspect]
     Indication: ADENOCARCINOMA
     Dosage: UNK UKN, UNK
     Dates: start: 20120530
  4. CARBOPLATINE [Suspect]
     Dosage: UNK UKN, UNK
     Dates: start: 20120620
  5. CARBOPLATINE [Suspect]
     Dosage: UNK UKN, UNK
     Dates: start: 20120718
  6. ALIMTA [Suspect]
     Indication: ADENOCARCINOMA
     Dosage: UNK UKN, UNK
     Dates: start: 20120530
  7. ALIMTA [Suspect]
     Dosage: UNK UKN, UNK
     Dates: start: 20120620
  8. ALIMTA [Suspect]
     Dosage: UNK UKN, UNK
     Dates: start: 20120718
  9. FOLIC ACID [Concomitant]
     Dosage: UNK UKN, UNK
  10. PRIMPERAN [Concomitant]
     Dosage: UNK UKN, UNK
  11. SOLUPRED [Concomitant]
     Dosage: UNK UKN, UNK

REACTIONS (3)
  - Neutropenia [Recovering/Resolving]
  - Diarrhoea [Recovered/Resolved]
  - Anaemia [Recovering/Resolving]
